FAERS Safety Report 4364728-4 (Version None)
Quarter: 2004Q2

REPORT INFORMATION
  Report Type: 
  Country: None (occurrence: None)
  Receive Date: 20040525
  Receipt Date: 20040525
  Transmission Date: 20050107
  Serious: No
  Sender: FDA-Public Use
  Company Number: None

PATIENT
  Sex: Male
  Weight: 96 kg

DRUGS (14)
  1. ABILIFY [Suspect]
     Indication: BIPOLAR DISORDER
     Dosage: 20 MG QD ORAL
     Route: 048
     Dates: start: 20040506, end: 20040508
  2. ABILIFY [Suspect]
     Indication: OBSESSIVE-COMPULSIVE DISORDER
     Dosage: 20 MG QD ORAL
     Route: 048
     Dates: start: 20040506, end: 20040508
  3. ABILIFY [Suspect]
     Indication: PERSONALITY DISORDER
     Dosage: 20 MG QD ORAL
     Route: 048
     Dates: start: 20040506, end: 20040508
  4. LORAZEPAM [Concomitant]
  5. ZIPRASIDONE [Concomitant]
  6. CLONAZEPAM [Concomitant]
  7. GABAPENTIN [Concomitant]
  8. PAXIL [Concomitant]
  9. TERAZOSIN HCL [Concomitant]
  10. LITHIUM CARBONATE [Concomitant]
  11. PROPRANOLOL [Concomitant]
  12. QUETIAPINE FUMARATE [Concomitant]
  13. SYNTHROID [Concomitant]
  14. METFORMIN HCL [Concomitant]

REACTIONS (3)
  - ABNORMAL BEHAVIOUR [None]
  - BLOOD GLUCOSE INCREASED [None]
  - INCOHERENT [None]
